FAERS Safety Report 8899249 (Version 1)
Quarter: 2012Q4

REPORT INFORMATION
  Report Type: 
  Country: KR (occurrence: KR)
  Receive Date: 20121109
  Receipt Date: 20121109
  Transmission Date: 20130627
  Serious: Yes (Other)
  Sender: FDA-Public Use
  Company Number: KR-BRISTOL-MYERS SQUIBB COMPANY-17084336

PATIENT
  Age: 9 Year
  Sex: Female

DRUGS (3)
  1. CARBOPLATIN [Suspect]
     Dosage: Suspension
  2. ETOPOSIDE [Suspect]
     Dosage: suspension
  3. MELPHALAN [Suspect]
     Dosage: suspension

REACTIONS (1)
  - Follicular thyroid cancer [Recovered/Resolved]
